FAERS Safety Report 7660173-4 (Version None)
Quarter: 2011Q3

REPORT INFORMATION
  Report Type: 
  Country: None (occurrence: None)
  Receive Date: 20110805
  Receipt Date: 20110728
  Transmission Date: 20111222
  Serious: Yes (Other)
  Sender: FDA-Public Use
  Company Number: PHHY2011FR65609

PATIENT
  Age: 65 Year
  Sex: Female
  Weight: 60 kg

DRUGS (3)
  1. ACETAMINOPHEN [Concomitant]
     Indication: CHILLS
  2. ACETAMINOPHEN [Concomitant]
     Indication: PAIN
  3. ZOLEDRONOC ACID [Suspect]
     Indication: OSTEOPOROSIS POSTMENOPAUSAL
     Dosage: UNK UKN, UNK
     Route: 042
     Dates: start: 20101210

REACTIONS (5)
  - GENERAL PHYSICAL CONDITION ABNORMAL [None]
  - CHILLS [None]
  - NAUSEA [None]
  - PAIN [None]
  - ASTHENIA [None]
